FAERS Safety Report 6997470-1 (Version None)
Quarter: 2010Q3

REPORT INFORMATION
  Report Type: 
  Country: None (occurrence: None)
  Receive Date: 20100918
  Receipt Date: 20091015
  Transmission Date: 20110219
  Serious: No
  Sender: FDA-Public Use
  Company Number: US-WYE-H11624509

PATIENT
  Sex: Male
  Weight: 85.35 kg

DRUGS (4)
  1. EFFEXOR XR [Suspect]
     Indication: DEPRESSION
     Route: 048
     Dates: start: 20040101, end: 20070101
  2. EFFEXOR XR [Suspect]
     Route: 048
     Dates: start: 20070101, end: 20070101
  3. EFFEXOR XR [Suspect]
     Route: 048
     Dates: start: 20070101, end: 20070101
  4. EFFEXOR XR [Suspect]
     Route: 048
     Dates: start: 20070101

REACTIONS (5)
  - CONSTIPATION [None]
  - CRYING [None]
  - DRUG WITHDRAWAL SYNDROME [None]
  - MOROSE [None]
  - WHITE BLOOD CELL COUNT DECREASED [None]
